FAERS Safety Report 6419107-2 (Version None)
Quarter: 2009Q4

REPORT INFORMATION
  Report Type: 
  Country: None (occurrence: None)
  Receive Date: 20091027
  Receipt Date: 20091013
  Transmission Date: 20100525
  Serious: Yes (Hospitalization)
  Sender: FDA-Public Use
  Company Number: 2009AP004003

PATIENT
  Sex: Male

DRUGS (6)
  1. RAMIPRIL [Suspect]
     Indication: HYPERTENSION
     Dosage: 5 MG; PO; QD
     Route: 048
  2. ATENOLOL [Suspect]
     Indication: HYPERTENSION
     Dosage: 50 MG; PO; QD
     Route: 048
  3. SEROQUEL [Suspect]
     Indication: PSYCHOTIC DISORDER
     Dosage: 300 MG; PO; BID; 400 MG; PO; QD; 500 MG; PO; QD
     Route: 048
     Dates: start: 20090101
  4. ASPIRIN [Concomitant]
  5. PARACETAMOL (PARACETAMOL) [Concomitant]
  6. FLUOXETINE [Concomitant]

REACTIONS (4)
  - HYPOTENSION [None]
  - INCORRECT DOSE ADMINISTERED [None]
  - SELF-MEDICATION [None]
  - SYNCOPE [None]
